FAERS Safety Report 6197184-4 (Version None)
Quarter: 2009Q2

REPORT INFORMATION
  Report Type: 
  Country: None (occurrence: None)
  Receive Date: 20090520
  Receipt Date: 20090518
  Transmission Date: 20091009
  Serious: Yes (Other)
  Sender: FDA-Public Use
  Company Number: US-AMGEN-US346150

PATIENT
  Sex: Male
  Weight: 83 kg

DRUGS (6)
  1. NPLATE [Suspect]
     Indication: IDIOPATHIC THROMBOCYTOPENIC PURPURA
     Route: 058
     Dates: start: 20090213, end: 20090417
  2. CORTICOSTEROIDS [Concomitant]
     Dates: start: 20081229
  3. PENTOSTATIN [Concomitant]
     Route: 065
     Dates: start: 20090209, end: 20090304
  4. RITUXIMAB [Concomitant]
     Route: 065
     Dates: start: 20090209, end: 20090304
  5. CYCLOPHOSPHAMIDE [Concomitant]
     Route: 065
     Dates: start: 20090209, end: 20090304
  6. FLUDARABINE PHOSPHATE [Concomitant]
     Route: 065

REACTIONS (1)
  - THERAPEUTIC RESPONSE DECREASED [None]
